FAERS Safety Report 4280007-8 (Version None)
Quarter: 2004Q1

REPORT INFORMATION
  Report Type: 
  Country: None (occurrence: None)
  Receive Date: 20040126
  Receipt Date: 20040115
  Transmission Date: 20041129
  Serious: Yes (Hospitalization)
  Sender: FDA-Public Use
  Company Number: BR-SHR-04-019968

PATIENT
  Age: 20 Year
  Sex: Female

DRUGS (2)
  1. YASMIN [Suspect]
     Dosage: 1 TAB(S), ORAL
     Route: 048
     Dates: start: 20030901
  2. SUN BATH PROTECTIVE TANNING LOTION [Concomitant]

REACTIONS (5)
  - BLOOD BILIRUBIN INCREASED [None]
  - HAEMOLYTIC ANAEMIA [None]
  - JAUNDICE [None]
  - METRORRHAGIA [None]
  - SYSTEMIC LUPUS ERYTHEMATOSUS [None]
